FAERS Safety Report 4758498-5 (Version None)
Quarter: 2005Q3

REPORT INFORMATION
  Report Type: 
  Country: None (occurrence: None)
  Receive Date: 20050826
  Receipt Date: 20050818
  Transmission Date: 20060218
  Serious: Yes (Other)
  Sender: FDA-Public Use
  Company Number: 2005-08-1425

PATIENT

DRUGS (1)
  1. PEG-INTRON [Suspect]
     Indication: CHRONIC HEPATITIS
     Dosage: SUBCUTANEOUS
     Route: 058

REACTIONS (1)
  - GUILLAIN-BARRE SYNDROME [None]
